FAERS Safety Report 25854053 (Version 1)
Quarter: 2025Q3

REPORT INFORMATION
  Report Type: Spontaneous
  Country: US (occurrence: US)
  Receive Date: 20250926
  Receipt Date: 20250926
  Transmission Date: 20251021
  Serious: Yes (Life-Threatening, Hospitalization, Other)
  Sender: PFIZER
  Company Number: US-PFIZER INC-PV202500114918

PATIENT
  Age: 29 Year
  Sex: Female

DRUGS (1)
  1. MISOPROSTOL [Suspect]
     Active Substance: MISOPROSTOL
     Indication: Ectopic pregnancy termination

REACTIONS (3)
  - Coronary artery dissection [Recovering/Resolving]
  - Acute myocardial infarction [Recovering/Resolving]
  - Off label use [Unknown]
